FAERS Safety Report 8021840-6 (Version None)
Quarter: 2012Q1

REPORT INFORMATION
  Report Type: 
  Country: None (occurrence: None)
  Receive Date: 20120104
  Receipt Date: 20111216
  Transmission Date: 20120608
  Serious: Yes (Hospitalization, Other)
  Sender: FDA-Public Use
  Company Number: US-SANOFI-AVENTIS-2011SA082989

PATIENT
  Age: 70 Year
  Sex: Female

DRUGS (2)
  1. MULTAQ [Suspect]
     Indication: ATRIAL FIBRILLATION
     Route: 048
     Dates: start: 20111001
  2. MULTAQ [Suspect]
     Route: 048

REACTIONS (6)
  - VENTRICULAR EXTRASYSTOLES [None]
  - DYSPNOEA [None]
  - HEART RATE DECREASED [None]
  - FATIGUE [None]
  - DIZZINESS [None]
  - NAUSEA [None]
